FAERS Safety Report 17066722 (Version 1)
Quarter: 2019Q4

REPORT INFORMATION
  Report Type: Spontaneous
  Country: US (occurrence: US)
  Receive Date: 20191024
  Receipt Date: 20191024
  Transmission Date: 20200122
  Serious: Yes (Hospitalization)
  Sender: FDA-Public Use
  Company Number: None

PATIENT
  Age: 50 Year
  Sex: Female

DRUGS (3)
  1. VITAMIN D [Concomitant]
     Active Substance: VITAMIN D NOS
  2. MELOXICAM. [Concomitant]
     Active Substance: MELOXICAM
  3. SOFOS/VELPAT 400MG-100MG [Suspect]
     Active Substance: SOFOSBUVIR\VELPATASVIR
     Indication: CHRONIC HEPATITIS C
     Dosage: ?          OTHER DOSE:400MG-100MG;?
     Route: 048
     Dates: start: 20190927

REACTIONS (1)
  - Fatigue [None]

NARRATIVE: CASE EVENT DATE: 20191024
